FAERS Safety Report 18251793 (Version 3)
Quarter: 2020Q4

REPORT INFORMATION
  Report Type: Spontaneous
  Country: JP (occurrence: JP)
  Receive Date: 20200910
  Receipt Date: 20201014
  Transmission Date: 20210113
  Serious: Yes (Other)
  Sender: FDA-Public Use
  Company Number: JP-TAIHO ONCOLOGY  INC-JPTT200199

PATIENT
  Age: 75 Year
  Sex: Male
  Weight: 48.8 kg

DRUGS (5)
  1. AVASTIN [Suspect]
     Active Substance: BEVACIZUMAB
     Indication: RECTAL CANCER METASTATIC
     Route: 041
     Dates: start: 20200625, end: 20200625
  2. NAUZELIN [Concomitant]
     Active Substance: DOMPERIDONE
     Dosage: AS NEEDED
     Route: 048
     Dates: start: 20190408
  3. MIYA-BM [Concomitant]
     Active Substance: CLOSTRIDIUM BUTYRICUM SPORES STRAIN M-55
     Route: 048
     Dates: start: 20190408
  4. LONSURF [Suspect]
     Active Substance: TIPIRACIL HYDROCHLORIDE\TRIFLURIDINE
     Indication: RECTAL CANCER METASTATIC
     Dosage: ON DAYS 1-5 AND 8-12 OF EACH 28-DAY CYCLE, 10 DOSING DAYS
     Route: 048
     Dates: start: 20200625, end: 20200706
  5. DAIKENCHUTO [Concomitant]
     Active Substance: HERBALS
     Route: 048
     Dates: start: 20190408

REACTIONS (3)
  - Generalised oedema [Recovering/Resolving]
  - Nephrotic syndrome [Recovering/Resolving]
  - Toxic skin eruption [Recovering/Resolving]

NARRATIVE: CASE EVENT DATE: 20200709
